FAERS Safety Report 16688678 (Version 1)
Quarter: 2019Q3

REPORT INFORMATION
  Report Type: Spontaneous
  Country: US (occurrence: US)
  Receive Date: 20190809
  Receipt Date: 20190809
  Transmission Date: 20191004
  Serious: No
  Sender: FDA-Public Use
  Company Number: US-ASTRAZENECA-2019SF00852

PATIENT
  Age: 27553 Day
  Sex: Female
  Weight: 54 kg

DRUGS (1)
  1. TUDORZA PRESSAIR [Suspect]
     Active Substance: ACLIDINIUM BROMIDE
     Indication: CHRONIC OBSTRUCTIVE PULMONARY DISEASE
     Route: 055
     Dates: start: 20190703

REACTIONS (4)
  - Product dose omission [Not Recovered/Not Resolved]
  - Anxiety [Unknown]
  - Device issue [Unknown]
  - Intentional device misuse [Recovered/Resolved]

NARRATIVE: CASE EVENT DATE: 20190703
